FAERS Safety Report 17608837 (Version 1)
Quarter: 2020Q2

REPORT INFORMATION
  Report Type: Spontaneous
  Country: IT (occurrence: IT)
  Receive Date: 20200401
  Receipt Date: 20200401
  Transmission Date: 20200713
  Serious: Yes (Hospitalization, Other)
  Sender: FDA-Public Use
  Company Number: IT-ABBVIE-20K-083-3339777-00

PATIENT
  Age: 44 Year
  Sex: Female
  Weight: 70 kg

DRUGS (7)
  1. ACETAMINOPHEN. [Concomitant]
     Active Substance: ACETAMINOPHEN
     Indication: PAIN
     Dosage: PARACETAMOL 1000 MG 3TIMES/DAY; PATIENT CONTROLLED EPIDURAL ANAESTHESIA
     Route: 065
  2. KETOROLAC [Suspect]
     Active Substance: KETOROLAC TROMETHAMINE
     Indication: ANTICOAGULANT THERAPY
  3. CHIROCAINE [Suspect]
     Active Substance: LEVOBUPIVACAINE HYDROCHLORIDE
     Indication: EPIDURAL ANAESTHESIA
     Route: 008
  4. DALTEPARIN [Suspect]
     Active Substance: DALTEPARIN
     Indication: ANTICOAGULANT THERAPY
     Route: 065
  5. SUFENTANIL [Suspect]
     Active Substance: SUFENTANIL
     Indication: EPIDURAL ANAESTHESIA
     Dosage: 0.5 MCG/ML 4 ML/H
     Route: 065
  6. TRAMADOL. [Concomitant]
     Active Substance: TRAMADOL
     Indication: PAIN
     Dosage: PATIENT CONTROLLED EPIDURAL ANAESTHESIA
     Route: 048
  7. KETOROLAC [Suspect]
     Active Substance: KETOROLAC TROMETHAMINE
     Indication: PAIN
     Route: 042

REACTIONS (4)
  - Maternal exposure during pregnancy [Unknown]
  - Twin pregnancy [Unknown]
  - Spinal epidural haematoma [Recovering/Resolving]
  - Live birth [Unknown]
